FAERS Safety Report 5626207-3 (Version None)
Quarter: 2008Q1

REPORT INFORMATION
  Report Type: 
  Country: None (occurrence: None)
  Receive Date: 20080214
  Receipt Date: 20080212
  Transmission Date: 20080703
  Serious: Yes (Death)
  Sender: FDA-Public Use
  Company Number: A0709116A

PATIENT
  Age: 70 Year
  Sex: Male

DRUGS (1)
  1. COREG [Suspect]
     Dosage: 3.125MG UNKNOWN
     Route: 048
     Dates: start: 19970101, end: 20031224

REACTIONS (1)
  - DEATH [None]
